FAERS Safety Report 19798818 (Version 1)
Quarter: 2021Q3

REPORT INFORMATION
  Report Type: Spontaneous
  Country: US (occurrence: US)
  Receive Date: 20210907
  Receipt Date: 20210907
  Transmission Date: 20211014
  Serious: Yes (Hospitalization)
  Sender: FDA-Public Use
  Company Number: None

PATIENT
  Age: 17 Year
  Sex: Female
  Weight: 60 kg

DRUGS (5)
  1. UCERIS, BUDESONIDE [Concomitant]
     Dates: start: 20210505
  2. REGEN?COV [Suspect]
     Active Substance: CASIRIVIMAB\IMDEVIMAB
     Indication: CORONAVIRUS INFECTION
     Dates: start: 20210823
  3. INFLIXIMAB?ABDA [Concomitant]
     Active Substance: INFLIXIMAB-ABDA
     Dates: start: 20200929
  4. REGEN?COV [Suspect]
     Active Substance: CASIRIVIMAB\IMDEVIMAB
     Indication: IMMUNOSUPPRESSION
     Dates: start: 20210823
  5. IRON SUCROSE, VENOFER [Concomitant]
     Dates: start: 20201210

REACTIONS (5)
  - Hypovolaemic shock [None]
  - Vomiting [None]
  - Diarrhoea [None]
  - Mental status changes [None]
  - Hyponatraemia [None]

NARRATIVE: CASE EVENT DATE: 20210830
